FAERS Safety Report 18415940 (Version 2)
Quarter: 2021Q3

REPORT INFORMATION
  Report Type: Spontaneous
  Country: US (occurrence: US)
  Receive Date: 20201022
  Receipt Date: 20210703
  Transmission Date: 20211014
  Serious: Yes (Other)
  Sender: FDA-Public Use
  Company Number: US-JNJFOC-20201024166

PATIENT
  Age: 4 Decade
  Sex: Female

DRUGS (8)
  1. VALTREX [Concomitant]
     Active Substance: VALACYCLOVIR HYDROCHLORIDE
     Indication: ORAL HERPES
     Route: 065
     Dates: start: 20091028, end: 20181218
  2. ELMIRON [Suspect]
     Active Substance: PENTOSAN POLYSULFATE SODIUM
     Dosage: 100 MG NIGHTLY OR 100 MG THRICE A DAY
     Route: 048
     Dates: start: 20160419, end: 20190104
  3. CANASA [Concomitant]
     Active Substance: MESALAMINE
     Indication: COLITIS ULCERATIVE
     Route: 065
     Dates: start: 20091023
  4. DIAZEPAM. [Concomitant]
     Active Substance: DIAZEPAM
     Indication: PRODUCT USED FOR UNKNOWN INDICATION
     Route: 065
     Dates: start: 20091022
  5. TRETINOIN. [Concomitant]
     Active Substance: TRETINOIN
     Indication: ACNE
     Route: 065
     Dates: start: 20120613, end: 20140228
  6. HYOSCYAMINE. [Concomitant]
     Active Substance: HYOSCYAMINE
     Indication: COLITIS ULCERATIVE
     Route: 065
     Dates: start: 20120905, end: 20130201
  7. TAMSULOSIN [Concomitant]
     Active Substance: TAMSULOSIN
     Indication: URINARY RETENTION
     Route: 065
     Dates: start: 20120817, end: 20121116
  8. ELMIRON [Suspect]
     Active Substance: PENTOSAN POLYSULFATE SODIUM
     Indication: CYSTITIS INTERSTITIAL
     Route: 048
     Dates: start: 2001, end: 20160418

REACTIONS (7)
  - Maculopathy [Unknown]
  - Product use issue [Unknown]
  - Anxiety [Not Recovered/Not Resolved]
  - Therapeutic response unexpected [Unknown]
  - Off label use [Unknown]
  - Attention deficit hyperactivity disorder [Not Recovered/Not Resolved]
  - Depression [Not Recovered/Not Resolved]

NARRATIVE: CASE EVENT DATE: 2001
